FAERS Safety Report 4287307-6 (Version None)
Quarter: 2004Q1

REPORT INFORMATION
  Report Type: 
  Country: None (occurrence: None)
  Receive Date: 20040205
  Receipt Date: 20040123
  Transmission Date: 20041129
  Serious: Yes (Death)
  Sender: FDA-Public Use
  Company Number: 04H-163-0249024-00

PATIENT
  Sex: 0

DRUGS (1)
  1. MORPHINE SUL INJ [Suspect]
     Indication: PAIN

REACTIONS (1)
  - OVERDOSE [None]
